FAERS Safety Report 25860415 (Version 8)
Quarter: 2025Q4

REPORT INFORMATION
  Report Type: Spontaneous
  Country: EU (occurrence: EU)
  Receive Date: 20250929
  Receipt Date: 20251023
  Transmission Date: 20260118
  Serious: Yes (Other)
  Sender: PFIZER
  Company Number: EU-PFIZER INC-202500192322

PATIENT
  Age: 79 Year
  Sex: Female

DRUGS (3)
  1. LORAZEPAM [Suspect]
     Active Substance: LORAZEPAM
     Dosage: AT NIGHT I TAKE ELIQUIS AND AN ORFIDAL, THEN DURING THE DAY I TAKE A QUARTER AND A HALF
  2. ELIQUIS [Suspect]
     Active Substance: APIXABAN
     Dosage: AT NIGHT I TAKE ELIQUIS
  3. ALPRAZOLAM [Concomitant]
     Active Substance: ALPRAZOLAM

REACTIONS (17)
  - Drug dependence [Unknown]
  - Arrhythmia [Unknown]
  - Malaise [Unknown]
  - Asthenia [Unknown]
  - Nausea [Unknown]
  - Fatigue [Unknown]
  - Headache [Unknown]
  - Dizziness [Unknown]
  - Blood pressure decreased [Unknown]
  - Orthostatic intolerance [Unknown]
  - Fall [Unknown]
  - Brain fog [Unknown]
  - Drug tolerance [Unknown]
  - Nervous system disorder [Unknown]
  - Hypertension [Unknown]
  - Anxiety [Unknown]
  - Agitation [Unknown]
